FAERS Safety Report 12669856 (Version 1)
Quarter: 2016Q3

REPORT INFORMATION
  Report Type: Report from Study
  Country: BR (occurrence: BR)
  Receive Date: 20160819
  Receipt Date: 20160819
  Transmission Date: 20161109
  Serious: Yes (Other)
  Sender: FDA-Public Use
  Company Number: PHHY2016BR067357

PATIENT
  Age: 35 Year
  Sex: Female
  Weight: 45.7 kg

DRUGS (2)
  1. EXJADE [Suspect]
     Active Substance: DEFERASIROX
     Indication: THALASSAEMIA BETA
     Dosage: 1000 MG (25 MG/KG), QD
     Route: 048
  2. IRON [Concomitant]
     Active Substance: IRON
     Indication: PRODUCT USED FOR UNKNOWN INDICATION
     Route: 005

REACTIONS (12)
  - Malaise [Unknown]
  - Serum ferritin increased [Unknown]
  - Diarrhoea [Unknown]
  - Abdominal pain upper [Unknown]
  - Syncope [Unknown]
  - Dyspnoea [Unknown]
  - Abdominal pain [Unknown]
  - Abasia [Unknown]
  - Influenza [Unknown]
  - Pyrexia [Unknown]
  - Blood iron increased [Unknown]
  - Viral infection [Unknown]

NARRATIVE: CASE EVENT DATE: 201602
